FAERS Safety Report 10555830 (Version 1)
Quarter: 2014Q4

REPORT INFORMATION
  Report Type: Spontaneous
  Country: DK (occurrence: CZ)
  Receive Date: 20141030
  Receipt Date: 20141030
  Transmission Date: 20150529
  Serious: Yes (Hospitalization)
  Sender: FDA-Public Use
  Company Number: CZ-FRI-1000071981

PATIENT
  Age: 67 Year
  Sex: Female

DRUGS (7)
  1. ANOPYRIN 100 MG [Concomitant]
     Active Substance: ASPIRIN
  2. ESCITALOPRAM [Suspect]
     Active Substance: ESCITALOPRAM OXALATE
     Indication: DEPRESSION
     Dosage: 10 MG
     Route: 048
     Dates: start: 20140801, end: 20140807
  3. CANCOMBINO 32 MG/12.5 MG [Suspect]
     Active Substance: CANDESARTAN CILEXETIL\HYDROCHLOROTHIAZIDE
  4. LEXAURIN [Concomitant]
     Active Substance: BROMAZEPAM
  5. ZOCOR 20 MG [Concomitant]
  6. CONCOR COR 2.5 MG [Concomitant]
  7. KAPIDIN 10 MG [Concomitant]

REACTIONS (5)
  - Hyponatraemia [Recovered/Resolved]
  - Headache [Recovered/Resolved]
  - Hypochloraemia [Recovered/Resolved]
  - Hypokalaemia [Recovered/Resolved]
  - Presyncope [Recovered/Resolved]

NARRATIVE: CASE EVENT DATE: 20140808
